FAERS Safety Report 18031671 (Version 3)
Quarter: 2020Q3

REPORT INFORMATION
  Report Type: Spontaneous
  Country: US (occurrence: US)
  Receive Date: 20200716
  Receipt Date: 20200921
  Transmission Date: 20201103
  Serious: Yes (Life-Threatening, Hospitalization, Other)
  Sender: FDA-Public Use
  Company Number: US-DRREDDYS-USA/USA/20/0125083

PATIENT
  Age: 26 Year
  Sex: Male

DRUGS (3)
  1. TESTOSTERONE INJECTABLE SUSPENSION [Suspect]
     Active Substance: TESTOSTERONE
     Indication: PRODUCT USED FOR UNKNOWN INDICATION
  2. LIOTHYRONINE [Suspect]
     Active Substance: LIOTHYRONINE
     Indication: PRODUCT USED FOR UNKNOWN INDICATION
     Route: 048
  3. STANOZOLOL [Suspect]
     Active Substance: STANOZOLOL
     Indication: STEROID THERAPY

REACTIONS (4)
  - Thrombocytosis [Unknown]
  - Coronary artery occlusion [Recovering/Resolving]
  - Acute myocardial infarction [Recovered/Resolved]
  - Left ventricular hypertrophy [Unknown]
